FAERS Safety Report 8903177 (Version 1)
Quarter: 2012Q4

REPORT INFORMATION
  Report Type: 
  Country: DK (occurrence: DK)
  Receive Date: 20121113
  Receipt Date: 20121113
  Transmission Date: 20130627
  Serious: Yes (Disabling)
  Sender: FDA-Public Use
  Company Number: DK-009507513-1211DNK004973

PATIENT
  Age: 38 Year
  Sex: Male
  Weight: 78 kg

DRUGS (1)
  1. ELOCON [Suspect]
     Indication: DRY SKIN
     Dosage: Dose as necessary, strength 0.1%
     Route: 003

REACTIONS (1)
  - Chorioretinopathy [Not Recovered/Not Resolved]
